FAERS Safety Report 14021700 (Version 1)
Quarter: 2017Q3

REPORT INFORMATION
  Report Type: Report from Study
  Country: US (occurrence: US)
  Receive Date: 20170928
  Receipt Date: 20170928
  Transmission Date: 20171128
  Serious: No
  Sender: FDA-Public Use
  Company Number: US-CLOVIS ONCOLOGY-CLO-2017-000892

PATIENT
  Sex: Female

DRUGS (1)
  1. RUBRACA [Suspect]
     Active Substance: RUCAPARIB CAMSYLATE
     Indication: OVARIAN CANCER
     Dosage: 600 MG, BID
     Route: 048
     Dates: start: 20170726

REACTIONS (7)
  - Fatigue [Unknown]
  - Abdominal pain [Unknown]
  - Adverse drug reaction [Not Recovered/Not Resolved]
  - Weight decreased [Not Recovered/Not Resolved]
  - Nausea [Unknown]
  - Decreased appetite [Unknown]
  - Back pain [Not Recovered/Not Resolved]
